FAERS Safety Report 8390081-5 (Version None)
Quarter: 2012Q2

REPORT INFORMATION
  Report Type: 
  Country: None (occurrence: None)
  Receive Date: 20120529
  Receipt Date: 20120523
  Transmission Date: 20120825
  Serious: Yes (Hospitalization)
  Sender: FDA-Public Use
  Company Number: PHHY2010US78535

PATIENT
  Sex: Female
  Weight: 80.297 kg

DRUGS (14)
  1. SENOKOT [Concomitant]
  2. DUONEB [Concomitant]
  3. FOLIC ACID [Concomitant]
  4. POTASSIUM CHLORIDE [Concomitant]
  5. LOVENOX [Concomitant]
  6. EXJADE [Suspect]
     Indication: SICKLE CELL ANAEMIA
     Dosage: 1500 MG, DAILY
     Route: 048
     Dates: start: 20060801
  7. OXYCONTIN [Concomitant]
  8. LORTAB [Concomitant]
     Dosage: 10500 Q6H, PRN
     Route: 048
  9. ALBUTEROL [Concomitant]
  10. TYLENOL [Concomitant]
  11. DILAUDID [Concomitant]
     Dosage: 4 MG, Q3H PRN
  12. HYDREA [Concomitant]
     Dosage: 500 MG, BID
  13. EXJADE [Suspect]
     Indication: HAEMOCHROMATOSIS
     Dosage: 1500 MG, DAILY
     Route: 048
     Dates: start: 20100501
  14. LASIX [Concomitant]

REACTIONS (40)
  - TOOTH LOSS [None]
  - PYREXIA [None]
  - BACTERIAL INFECTION [None]
  - BLOOD POTASSIUM DECREASED [None]
  - SINUS DISORDER [None]
  - NAUSEA [None]
  - BLOOD PRESSURE DIASTOLIC DECREASED [None]
  - BLOOD CALCIUM DECREASED [None]
  - BLOOD PRESSURE SYSTOLIC DECREASED [None]
  - PULMONARY CONGESTION [None]
  - PAIN IN EXTREMITY [None]
  - HEADACHE [None]
  - BONE INFARCTION [None]
  - ABDOMINAL TENDERNESS [None]
  - BLOOD PRESSURE SYSTOLIC INCREASED [None]
  - ORAL MUCOSAL ERYTHEMA [None]
  - RALES [None]
  - SERRATIA TEST POSITIVE [None]
  - LEUKOCYTOSIS [None]
  - CHILLS [None]
  - BLOOD LACTATE DEHYDROGENASE INCREASED [None]
  - STAPHYLOCOCCAL BACTERAEMIA [None]
  - THROAT IRRITATION [None]
  - LYMPHADENOPATHY [None]
  - CARDIAC MURMUR [None]
  - CARDIOMEGALY [None]
  - EPIGASTRIC DISCOMFORT [None]
  - VOMITING [None]
  - BACK PAIN [None]
  - HEART RATE INCREASED [None]
  - LUNG INFILTRATION [None]
  - BLOOD ALKALINE PHOSPHATASE INCREASED [None]
  - RED BLOOD CELL SEDIMENTATION RATE INCREASED [None]
  - COUGH [None]
  - SEPSIS [None]
  - OSTEOMYELITIS [None]
  - APPETITE DISORDER [None]
  - UPPER RESPIRATORY TRACT INFECTION [None]
  - SICKLE CELL ANAEMIA WITH CRISIS [None]
  - PAIN [None]
